FAERS Safety Report 4939650-2 (Version None)
Quarter: 2006Q1

REPORT INFORMATION
  Report Type: 
  Country: None (occurrence: None)
  Receive Date: 20060310
  Receipt Date: 20060202
  Transmission Date: 20060701
  Serious: Yes (Death, Other)
  Sender: FDA-Public Use
  Company Number: US-MERCK-0602USA01708

PATIENT
  Age: 44 Year
  Sex: Male

DRUGS (2)
  1. VIOXX [Suspect]
     Indication: PAIN
     Route: 048
     Dates: start: 20030101, end: 20040411
  2. ALEVE [Concomitant]
     Route: 065

REACTIONS (23)
  - ABDOMINAL PAIN UPPER [None]
  - ALCOHOL WITHDRAWAL SYNDROME [None]
  - ANXIETY [None]
  - ASTHENIA [None]
  - BACK PAIN [None]
  - CONGESTIVE CARDIOMYOPATHY [None]
  - CONVULSION [None]
  - COUGH [None]
  - DECREASED APPETITE [None]
  - DEPRESSION [None]
  - DIARRHOEA [None]
  - DYSPHONIA [None]
  - FEELING HOT AND COLD [None]
  - GASTRIC DISORDER [None]
  - HYPERTROPHIC CARDIOMYOPATHY [None]
  - INTERVERTEBRAL DISC PROTRUSION [None]
  - LIMB INJURY [None]
  - PAIN [None]
  - RHINITIS ALLERGIC [None]
  - SEXUAL DYSFUNCTION [None]
  - SPINAL OSTEOARTHRITIS [None]
  - VISUAL DISTURBANCE [None]
  - VOMITING [None]
